FAERS Safety Report 20083800 (Version 1)
Quarter: 2021Q4

REPORT INFORMATION
  Report Type: Report from Study
  Country: US (occurrence: US)
  Receive Date: 20211118
  Receipt Date: 20211118
  Transmission Date: 20220303
  Serious: Yes (Other)
  Sender: FDA-Public Use
  Company Number: US-TEVA-2021-US-1976919

PATIENT
  Age: 41 Year
  Sex: Female

DRUGS (23)
  1. AUSTEDO [Suspect]
     Active Substance: DEUTETRABENAZINE
     Indication: Tardive dyskinesia
     Dosage: 6 MILLIGRAM DAILY;
     Route: 065
  2. AUSTEDO [Suspect]
     Active Substance: DEUTETRABENAZINE
     Dosage: 12 MILLIGRAM DAILY;
     Route: 065
  3. MORPHINE [Suspect]
     Active Substance: MORPHINE
     Route: 065
  4. TIZANIDINE [Suspect]
     Active Substance: TIZANIDINE
     Route: 065
  5. IBUPROFEN [Suspect]
     Active Substance: IBUPROFEN
     Route: 065
  6. MAGNESIUM [Concomitant]
     Active Substance: MAGNESIUM
  7. XANAX [Concomitant]
     Active Substance: ALPRAZOLAM
  8. VITAMIN B12 [Concomitant]
     Active Substance: CYANOCOBALAMIN
  9. LINZESS [Concomitant]
     Active Substance: LINACLOTIDE
  10. LAMICTAL [Concomitant]
     Active Substance: LAMOTRIGINE
  11. LEVOTHYROXINE SODIUM [Concomitant]
     Active Substance: LEVOTHYROXINE SODIUM
  12. VITAMIN D [Concomitant]
     Active Substance: VITAMIN D NOS
  13. LOVASTATIN [Concomitant]
     Active Substance: LOVASTATIN
  14. PYRIDOXINE [Concomitant]
     Active Substance: PYRIDOXINE
  15. PROPRANOLOL HYDROCHLORIDE [Concomitant]
     Active Substance: PROPRANOLOL HYDROCHLORIDE
  16. ENBREL [Concomitant]
     Active Substance: ETANERCEPT
  17. CLONIDINE HYDROCHLORIDE [Concomitant]
     Active Substance: CLONIDINE HYDROCHLORIDE
  18. TOPIRAMATE [Concomitant]
     Active Substance: TOPIRAMATE
  19. GABAPENTIN [Concomitant]
     Active Substance: GABAPENTIN
  20. METHOCARBAMOL [Concomitant]
     Active Substance: METHOCARBAMOL
  21. TRAZODONE HYDROCHLORIDE [Concomitant]
     Active Substance: TRAZODONE HYDROCHLORIDE
  22. AJOVY [Concomitant]
     Active Substance: FREMANEZUMAB-VFRM
     Route: 058
  23. NURTEC ODT [Concomitant]
     Active Substance: RIMEGEPANT SULFATE

REACTIONS (3)
  - Gastrectomy [Unknown]
  - Drug hypersensitivity [Unknown]
  - Dermatitis contact [Unknown]

NARRATIVE: CASE EVENT DATE: 20210101
